FAERS Safety Report 4752673-1 (Version None)
Quarter: 2005Q3

REPORT INFORMATION
  Report Type: 
  Country: None (occurrence: None)
  Receive Date: 20050823
  Receipt Date: 20050808
  Transmission Date: 20060218
  Serious: Yes (Death, Hospitalization)
  Sender: FDA-Public Use
  Company Number: DSA_26862_2005

PATIENT
  Age: 91 Year
  Sex: Female

DRUGS (5)
  1. LORAZEPAM [Suspect]
     Dosage: 1 TAB Q DAY PO
     Route: 048
     Dates: start: 20030210, end: 20030212
  2. MORPHINE [Suspect]
     Dosage: 20 MG Q DAY IV
     Route: 042
     Dates: start: 20030213, end: 20030213
  3. PERFALGAN [Concomitant]
  4. EQUANIL [Concomitant]
  5. LASILIX [Concomitant]

REACTIONS (1)
  - RESPIRATORY DISORDER [None]
